FAERS Safety Report 8342181-3 (Version None)
Quarter: 2012Q2

REPORT INFORMATION
  Report Type: 
  Country: None (occurrence: None)
  Receive Date: 20120507
  Receipt Date: 20120427
  Transmission Date: 20120825
  Serious: Yes (Hospitalization)
  Sender: FDA-Public Use
  Company Number: US-ABBOTT-12P-163-0930056-00

PATIENT
  Sex: Female
  Weight: 108.96 kg

DRUGS (7)
  1. CAFFEINE CITRATE [Concomitant]
     Indication: PRODUCT USED FOR UNKNOWN INDICATION
     Route: 048
     Dates: start: 20040820, end: 20040930
  2. HUMIRA [Suspect]
     Indication: RHEUMATOID ARTHRITIS
     Dates: start: 20040820, end: 20040907
  3. STEROID INJECTION [Concomitant]
     Indication: MATERNAL THERAPY TO ENHANCE FOETAL LUNG MATURITY
     Route: 050
     Dates: start: 20050306, end: 20050306
  4. CAFFEINE CITRATE [Concomitant]
     Route: 048
     Dates: start: 20041014, end: 20050320
  5. PRENATAL VITAMINS NOS [Concomitant]
     Indication: PRODUCT USED FOR UNKNOWN INDICATION
     Route: 048
     Dates: start: 20050109, end: 20050514
  6. CAFFEINE CITRATE [Concomitant]
     Route: 048
     Dates: start: 20041001, end: 20041013
  7. STOOL SOFTENER NOS [Concomitant]
     Indication: PRODUCT USED FOR UNKNOWN INDICATION
     Route: 048
     Dates: start: 20050222, end: 20050320

REACTIONS (9)
  - URINARY TRACT INFECTION [None]
  - DYSPEPSIA [None]
  - SHORTENED CERVIX [None]
  - HYPOTHYROIDISM [None]
  - GESTATIONAL DIABETES [None]
  - UTERINE CONTRACTIONS ABNORMAL [None]
  - HEADACHE [None]
  - ALPHA 1 FOETOPROTEIN INCREASED [None]
  - BACTERIAL INFECTION [None]
